FAERS Safety Report 7493652-3 (Version None)
Quarter: 2011Q2

REPORT INFORMATION
  Report Type: 
  Country: None (occurrence: None)
  Receive Date: 20110520
  Receipt Date: 20110418
  Transmission Date: 20111010
  Serious: Yes (Other)
  Sender: FDA-Public Use
  Company Number: US-BAYER-201022923NA

PATIENT
  Sex: Female
  Weight: 86.621 kg

DRUGS (10)
  1. YAZ [Suspect]
     Indication: CONTRACEPTION
     Dosage: UNK UNK, QD
     Route: 048
     Dates: start: 20071201, end: 20081201
  2. PROTONIX [Concomitant]
     Dosage: 40 MG, DAILY
     Route: 048
     Dates: start: 20080713
  3. YAZ [Suspect]
     Indication: PREMENSTRUAL SYNDROME
  4. HYDROCODONE/GUAIFENESIN [Concomitant]
  5. FLONASE [Concomitant]
     Dosage: 0.05 MG, 1-2 SPRAYS DAILY
     Route: 045
     Dates: start: 19980729
  6. AMOXIL [Concomitant]
  7. DROSPIRENONE AND ETHINYL ESTRADIOL [Suspect]
     Indication: PREMENSTRUAL SYNDROME
     Dosage: UNK
     Dates: start: 20071201, end: 20081201
  8. ZYRTEC [Concomitant]
     Dosage: 10 MG, DAILY
     Route: 048
     Dates: start: 20080609
  9. IBUPROFEN [Concomitant]
     Dosage: , 600 MG, TID, AS NEEDED
     Route: 048
     Dates: start: 20000622
  10. TESSALON [Concomitant]

REACTIONS (4)
  - CHOLECYSTITIS ACUTE [None]
  - PANCREATITIS [None]
  - GALLBLADDER INJURY [None]
  - CHOLELITHIASIS [None]
